FAERS Safety Report 13349865 (Version 2)
Quarter: 2017Q1

REPORT INFORMATION
  Report Type: Spontaneous
  Country: US (occurrence: US)
  Receive Date: 20170320
  Receipt Date: 20170322
  Transmission Date: 20170429
  Serious: Yes (Other)
  Sender: FDA-Public Use
  Company Number: US-SANOFI-AVENTIS-2013SA039926

PATIENT
  Age: 63 Year
  Sex: Male

DRUGS (2)
  1. SOLOSTAR [Suspect]
     Active Substance: DEVICE
     Indication: TYPE 2 DIABETES MELLITUS
  2. LANTUS SOLOSTAR [Suspect]
     Active Substance: INSULIN GLARGINE
     Indication: TYPE 2 DIABETES MELLITUS
     Dosage: DOSE:90 UNIT(S)
     Route: 065

REACTIONS (7)
  - Leg amputation [Unknown]
  - Device issue [Unknown]
  - Blood glucose increased [Unknown]
  - Drug dose omission [Unknown]
  - Product use issue [Unknown]
  - Feeling abnormal [Unknown]
  - Wrong technique in product usage process [Unknown]
